FAERS Safety Report 6371378-7 (Version None)
Quarter: 2009Q3

REPORT INFORMATION
  Report Type: 
  Country: None (occurrence: None)
  Receive Date: 20090923
  Receipt Date: 20090911
  Transmission Date: 20100115
  Serious: Yes (Hospitalization, Other)
  Sender: FDA-Public Use
  Company Number: GB-PFIZER INC-2009249098

PATIENT
  Age: 47 Year

DRUGS (1)
  1. NEURONTIN [Suspect]
     Indication: PAIN
     Dosage: 900 MG, 3X/DAY

REACTIONS (6)
  - DYSPHAGIA [None]
  - EYE PAIN [None]
  - FACIAL PARESIS [None]
  - MUSCULAR WEAKNESS [None]
  - SURGERY [None]
  - SWELLING FACE [None]
